FAERS Safety Report 10255566 (Version 3)
Quarter: 2015Q3

REPORT INFORMATION
  Report Type: Spontaneous
  Country: FR (occurrence: FR)
  Receive Date: 20140624
  Receipt Date: 20150911
  Transmission Date: 20151125
  Serious: Yes (Hospitalization, Other)
  Sender: FDA-Public Use
  Company Number: FR-SANOFI-AVENTIS-A02200803184

PATIENT
  Age: 34 Year
  Sex: Male
  Weight: 72 kg

DRUGS (6)
  1. ELOXATIN [Suspect]
     Active Substance: OXALIPLATIN
     Indication: COLORECTAL CANCER
     Route: 042
     Dates: start: 20070828, end: 20070831
  2. FLUOROURACIL. [Suspect]
     Active Substance: FLUOROURACIL
     Indication: COLORECTAL CANCER
     Route: 042
     Dates: start: 20070828, end: 20070831
  3. FLUOROURACIL. [Suspect]
     Active Substance: FLUOROURACIL
     Indication: COLORECTAL CANCER
     Route: 042
     Dates: start: 20070505
  4. ELOXATIN [Suspect]
     Active Substance: OXALIPLATIN
     Indication: COLORECTAL CANCER
     Route: 042
     Dates: start: 20070505
  5. ERBITUX [Suspect]
     Active Substance: CETUXIMAB
     Indication: COLORECTAL CANCER
     Route: 042
     Dates: start: 20070828, end: 20081009
  6. ELVORINE [Concomitant]
     Active Substance: LEUCOVORIN CALCIUM
     Indication: COLORECTAL CANCER
     Route: 042
     Dates: start: 20070828, end: 20070831

REACTIONS (4)
  - Neuropathy peripheral [Unknown]
  - Microcytic anaemia [Recovering/Resolving]
  - Mean cell volume decreased [Recovering/Resolving]
  - Anaemia macrocytic [Recovering/Resolving]

NARRATIVE: CASE EVENT DATE: 20070911
